FAERS Safety Report 24390392 (Version 1)
Quarter: 2024Q4

REPORT INFORMATION
  Report Type: Spontaneous
  Country: IN (occurrence: IN)
  Receive Date: 20241003
  Receipt Date: 20241003
  Transmission Date: 20250115
  Serious: Yes (Other)
  Sender: ZYDUS PHARM
  Company Number: IN-CADILA HEALTHCARE LIMITED-IN-ZYDUS-112637

PATIENT

DRUGS (14)
  1. DICLOFENAC [Suspect]
     Active Substance: DICLOFENAC
     Indication: Migraine
     Dosage: 100 MILLIGRAM  3-4 DAYS/MONTH
     Route: 065
  2. TRAMADOL [Suspect]
     Active Substance: TRAMADOL
     Indication: Migraine
     Dosage: 50-100MG
     Route: 065
  3. NAPROXEN [Suspect]
     Active Substance: NAPROXEN
     Indication: Migraine
     Dosage: 500 MILLIGRAM 5-6 DAYS/MONTH
     Route: 065
     Dates: start: 202201
  4. TOPIRAMATE [Suspect]
     Active Substance: TOPIRAMATE
     Indication: Migraine
     Dosage: 100 MILLIGRAM
     Route: 065
  5. SUMATRIPTAN [Suspect]
     Active Substance: SUMATRIPTAN
     Indication: Migraine
     Dosage: 85 MG 5-6 DAYS/MONTH
     Route: 065
     Dates: start: 202201
  6. ERGOTAMINE [Suspect]
     Active Substance: CAFFEINE\ERGOTAMINE\ERGOTAMINE TARTRATE
     Indication: Migraine
     Dosage: 1 MILLIGRAM
     Route: 065
     Dates: start: 2022
  7. AMITRIPTYLINE [Suspect]
     Active Substance: AMITRIPTYLINE
     Indication: Migraine
     Dosage: 25 MILLIGRAM, QD
     Route: 065
  8. VALPROATE [Suspect]
     Active Substance: VALPROIC ACID
     Indication: Migraine
     Dosage: 1000 MILLIGRAM, QD
     Route: 065
  9. IBUPROFEN [Suspect]
     Active Substance: IBUPROFEN
     Indication: Migraine
     Dosage: 400 MILLIGRAM
     Route: 065
  10. PROPRANOLOL [Suspect]
     Active Substance: PROPRANOLOL HYDROCHLORIDE
     Indication: Migraine
     Dosage: 40 MILLIGRAM
     Route: 065
  11. FLUNARIZINE [Suspect]
     Active Substance: FLUNARIZINE
     Indication: Migraine
     Dosage: 10 MILLIGRAM
     Route: 065
  12. ACETAMINOPHEN\CAFFEINE\ERGOTAMINE\PROCHLORPERAZINE [Suspect]
     Active Substance: ACETAMINOPHEN\CAFFEINE\ERGOTAMINE\PROCHLORPERAZINE
     Indication: Migraine
     Dosage: UNK
     Route: 065
  13. NAPROXEN\SUMATRIPTAN SUCCINATE [Suspect]
     Active Substance: NAPROXEN\SUMATRIPTAN SUCCINATE
     Indication: Migraine
     Dosage: 500/85MG
     Route: 065
  14. PREDNISOLONE [Suspect]
     Active Substance: PREDNISOLONE
     Indication: Migraine
     Dosage: UNK
     Route: 065

REACTIONS (2)
  - Serotonin syndrome [Recovered/Resolved]
  - Drug ineffective [Unknown]
